FAERS Safety Report 20232378 (Version 1)
Quarter: 2021Q4

REPORT INFORMATION
  Report Type: Spontaneous
  Country: JP (occurrence: JP)
  Receive Date: 20211227
  Receipt Date: 20211227
  Transmission Date: 20220303
  Serious: Yes (Other)
  Sender: FDA-Public Use
  Company Number: JP-MSD-2111JPN001962J

PATIENT
  Age: 66 Year
  Sex: Female

DRUGS (8)
  1. CUBICIN [Suspect]
     Active Substance: DAPTOMYCIN
     Indication: Corynebacterium infection
     Dosage: 6 MILLIGRAM/KILOGRAM, QD
     Route: 041
     Dates: start: 20210212, end: 20210218
  2. CUBICIN [Suspect]
     Active Substance: DAPTOMYCIN
     Indication: Febrile neutropenia
  3. SIVEXTRO [Suspect]
     Active Substance: TEDIZOLID PHOSPHATE
     Indication: Corynebacterium infection
     Dosage: 200 MILLIGRAM, QD
     Route: 041
     Dates: start: 20210316, end: 20210514
  4. SIVEXTRO [Suspect]
     Active Substance: TEDIZOLID PHOSPHATE
     Indication: Corynebacterium infection
     Dosage: 200 MILLIGRAM, QD
     Route: 048
     Dates: start: 20210515, end: 20210521
  5. MEROPENEM [Concomitant]
     Active Substance: MEROPENEM
     Indication: Febrile neutropenia
     Dosage: 1 GRAM, TID
     Route: 041
     Dates: start: 20210203, end: 20210218
  6. VFEND [Concomitant]
     Active Substance: VORICONAZOLE
     Indication: Febrile neutropenia
     Dosage: 100 MILLIGRAM, BID
     Route: 051
     Dates: start: 20210212, end: 20210217
  7. MICAFUNGIN SODIUM [Concomitant]
     Active Substance: MICAFUNGIN SODIUM
     Indication: Febrile neutropenia
     Dosage: 150 MILLIGRAM, QD
     Route: 051
     Dates: start: 20210217, end: 20210218
  8. ACYCLOVIR [Concomitant]
     Active Substance: ACYCLOVIR
     Indication: Febrile neutropenia
     Dosage: 250 MILLIGRAM, QD
     Route: 051
     Dates: start: 20210212, end: 20210218

REACTIONS (2)
  - Drug resistance [Recovered/Resolved]
  - Medical device site joint infection [Recovered/Resolved]

NARRATIVE: CASE EVENT DATE: 20210218
